FAERS Safety Report 15718219 (Version 2)
Quarter: 2020Q1

REPORT INFORMATION
  Report Type: Spontaneous
  Country: GB (occurrence: US)
  Receive Date: 20181213
  Receipt Date: 20200219
  Transmission Date: 20200409
  Serious: Yes (Death, Other)
  Sender: FDA-Public Use
  Company Number: US-ASTELLAS-2018US036725

PATIENT
  Sex: Female

DRUGS (1)
  1. TARCEVA [Suspect]
     Active Substance: ERLOTINIB HYDROCHLORIDE
     Indication: LUNG CARCINOMA CELL TYPE UNSPECIFIED STAGE IV
     Dosage: UNK UNK, UNKNOWN FREQ.
     Route: 065
     Dates: start: 20161015

REACTIONS (2)
  - Death [Fatal]
  - Drug resistance [Unknown]

NARRATIVE: CASE EVENT DATE: 20200124
